FAERS Safety Report 10160505 (Version 1)
Quarter: 2014Q2

REPORT INFORMATION
  Report Type: Spontaneous
  Country: US (occurrence: US)
  Receive Date: 20140508
  Receipt Date: 20140508
  Transmission Date: 20141212
  Serious: Yes (Other)
  Sender: FDA-Public Use
  Company Number: US-JNJFOC-20140500510

PATIENT
  Sex: Female

DRUGS (1)
  1. TOPAMAX [Suspect]
     Indication: MENTAL DISORDER
     Route: 048
     Dates: start: 2014

REACTIONS (2)
  - Central auditory processing disorder [Not Recovered/Not Resolved]
  - Off label use [Unknown]
